FAERS Safety Report 20022623 (Version 4)
Quarter: 2024Q3

REPORT INFORMATION
  Report Type: Report from Study
  Country: US (occurrence: US)
  Receive Date: 20211102
  Receipt Date: 20240710
  Transmission Date: 20241016
  Serious: No
  Sender: ACADIA PHARMACEUTICALS
  Company Number: US-ACADIA PHARMACEUTICALS INC.-ACA-2021-PIM-003661

PATIENT
  Age: 71 Year
  Sex: Male

DRUGS (25)
  1. NUPLAZID [Suspect]
     Active Substance: PIMAVANSERIN TARTRATE
     Indication: Parkinson^s disease
     Dosage: 34 MILLIGRAM, QD BY MOUTH EVERY DAY
     Route: 048
     Dates: start: 20210119
  2. NUPLAZID [Suspect]
     Active Substance: PIMAVANSERIN TARTRATE
     Indication: Dyskinesia
     Dosage: 34 MILLIGRAM,QD
     Route: 048
     Dates: start: 202305
  3. RIVASTIGMINE [Suspect]
     Active Substance: RIVASTIGMINE
  4. NOURIANZ [Concomitant]
     Active Substance: ISTRADEFYLLINE
     Dosage: 40 MILLIGRAM
  5. JANUVIA [Concomitant]
     Active Substance: SITAGLIPTIN PHOSPHATE
  6. CELEBREX [Concomitant]
     Active Substance: CELECOXIB
  7. ATORVASTATIN [Concomitant]
     Active Substance: ATORVASTATIN
  8. ALLOPURINOL [Concomitant]
     Active Substance: ALLOPURINOL
  9. METOPROLOL [Concomitant]
     Active Substance: METOPROLOL
  10. CARBIDOPA [Concomitant]
     Active Substance: CARBIDOPA
  11. METFORMIN [Concomitant]
     Active Substance: METFORMIN HYDROCHLORIDE
  12. OMEPRAZOLE [Concomitant]
     Active Substance: OMEPRAZOLE
  13. KRILL OIL [Concomitant]
     Active Substance: DIETARY SUPPLEMENT\KRILL OIL
  14. FLAXSEED [Concomitant]
     Active Substance: FLAX SEED
  15. VITAMIN D3 [Concomitant]
     Active Substance: CHOLECALCIFEROL
  16. LISINOPRIL [Concomitant]
     Active Substance: LISINOPRIL
  17. VITAMIN B12 [Concomitant]
     Active Substance: CYANOCOBALAMIN
  18. VITAMINS NOS [Concomitant]
     Active Substance: VITAMINS
  19. IRON [Concomitant]
     Active Substance: IRON
  20. POTASSIUM [Concomitant]
     Active Substance: POTASSIUM
  21. CHLORIDE ION [Concomitant]
     Active Substance: CHLORIDE ION
  22. ATORVASTATIN CALCIUM [Concomitant]
     Active Substance: ATORVASTATIN CALCIUM
  23. METOPROLOL SUCCINATE [Concomitant]
     Active Substance: METOPROLOL SUCCINATE
  24. CARBIDOPA LEVODOPA [Concomitant]
     Active Substance: CARBIDOPA\LEVODOPA
  25. ENTACAPONE [Concomitant]
     Active Substance: ENTACAPONE

REACTIONS (9)
  - Headache [Unknown]
  - Body temperature increased [Unknown]
  - Decreased appetite [Unknown]
  - Micturition urgency [Unknown]
  - Asthenia [Unknown]
  - Insomnia [Not Recovered/Not Resolved]
  - Dizziness [Not Recovered/Not Resolved]
  - Nausea [Not Recovered/Not Resolved]
  - Peripheral swelling [Unknown]

NARRATIVE: CASE EVENT DATE: 20211013
